FAERS Safety Report 14540747 (Version 1)
Quarter: 2018Q1

REPORT INFORMATION
  Report Type: Spontaneous
  Country: US (occurrence: US)
  Receive Date: 20180216
  Receipt Date: 20180216
  Transmission Date: 20180509
  Serious: Yes (Other)
  Sender: FDA-Public Use
  Company Number: US-OTSUKA-DJ20072907

PATIENT

DRUGS (2)
  1. FENTANYL TRANSDERMAL SYSTEM [Suspect]
     Active Substance: FENTANYL
     Route: 062
     Dates: start: 200609
  2. ABILIFY [Suspect]
     Active Substance: ARIPIPRAZOLE
     Route: 048
     Dates: start: 20071119

REACTIONS (3)
  - Coma [Recovered/Resolved]
  - Loss of consciousness [Unknown]
  - Lethargy [Unknown]

NARRATIVE: CASE EVENT DATE: 20071129
